FAERS Safety Report 7108951-4 (Version None)
Quarter: 2010Q4

REPORT INFORMATION
  Report Type: 
  Country: None (occurrence: None)
  Receive Date: 20101112
  Receipt Date: 20101109
  Transmission Date: 20110411
  Serious: Yes (Other)
  Sender: FDA-Public Use
  Company Number: 2010SP059144

PATIENT
  Sex: Male

DRUGS (1)
  1. ORMIGREIN (ORMIGREIN 01755201/) [Suspect]
     Indication: MIGRAINE
     Dosage: ; PO
     Route: 048
     Dates: end: 20100101

REACTIONS (1)
  - DRUG DEPENDENCE [None]
